FAERS Safety Report 7676539-2 (Version None)
Quarter: 2011Q3

REPORT INFORMATION
  Report Type: 
  Country: None (occurrence: None)
  Receive Date: 20110805
  Receipt Date: 20110722
  Transmission Date: 20111222
  Serious: Yes (Death)
  Sender: FDA-Public Use
  Company Number: LTI2010A00239

PATIENT
  Age: 82 Year
  Sex: Male

DRUGS (1)
  1. ACTOS [Suspect]
     Indication: TYPE 2 DIABETES MELLITUS
     Dosage: 15 MG (15 MG,1 IN 1 D) ORAL
     Route: 048
     Dates: start: 20050101, end: 20100101

REACTIONS (4)
  - BLADDER CANCER [None]
  - URINARY BLADDER HAEMORRHAGE [None]
  - RENAL CANCER [None]
  - METASTASES TO LIVER [None]
